FAERS Safety Report 23966839 (Version 1)
Quarter: 2024Q2

REPORT INFORMATION
  Report Type: Spontaneous
  Country: JP (occurrence: JP)
  Receive Date: 20240612
  Receipt Date: 20240612
  Transmission Date: 20240716
  Serious: Yes (Other)
  Sender: FDA-Public Use
  Company Number: JP-MLMSERVICE-20240528-PI077079-00097-4

PATIENT
  Age: 12 Year
  Sex: Male

DRUGS (4)
  1. IBUPROFEN [Suspect]
     Active Substance: IBUPROFEN
     Indication: Histiocytic necrotising lymphadenitis
     Dosage: UNKNOWN, UNKNOWN
     Route: 065
  2. CYCLOSPORINE [Suspect]
     Active Substance: CYCLOSPORINE
     Indication: Histiocytic necrotising lymphadenitis
     Dosage: 1.3-2.5 MG/KG/DAY AT EVERY RELAPSE
     Route: 048
  3. CYCLOSPORINE [Suspect]
     Active Substance: CYCLOSPORINE
     Dosage: 1.3-2.5 MG/KG/DAY AT EVERY RELAPSE
     Route: 048
  4. CYCLOSPORINE [Suspect]
     Active Substance: CYCLOSPORINE
     Dosage: 1.3-2.5 MG/KG/DAY AT EVERY RELAPSE
     Route: 048

REACTIONS (3)
  - Hypothermia [Recovered/Resolved]
  - Hypotension [Recovered/Resolved]
  - Bradycardia [Recovered/Resolved]
